FAERS Safety Report 6033954-0 (Version None)
Quarter: 2009Q1

REPORT INFORMATION
  Report Type: 
  Country: None (occurrence: None)
  Receive Date: 20090112
  Receipt Date: 20081229
  Transmission Date: 20090719
  Serious: Yes (Other)
  Sender: FDA-Public Use
  Company Number: PHEH2008US11435

PATIENT
  Sex: Male

DRUGS (3)
  1. TEKTURNA [Suspect]
     Dosage: 150 MG, BID
  2. TEKTURNA [Suspect]
     Dosage: NOT SPECIFIED
  3. BENAZEPRIL HYDROCHLORIDE [Concomitant]
     Dosage: 20 MG, QD

REACTIONS (3)
  - BLOOD PRESSURE INCREASED [None]
  - FLUID RETENTION [None]
  - URINE OUTPUT DECREASED [None]
